FAERS Safety Report 14673218 (Version 1)
Quarter: 2018Q1

REPORT INFORMATION
  Report Type: Spontaneous
  Country: ES (occurrence: ES)
  Receive Date: 20180323
  Receipt Date: 20180323
  Transmission Date: 20180509
  Serious: Yes (Other)
  Sender: FDA-Public Use
  Company Number: ES-EISAI MEDICAL RESEARCH-EC-2018-037324

PATIENT
  Sex: Male
  Weight: 90 kg

DRUGS (1)
  1. RABEPRAZOLE [Suspect]
     Active Substance: RABEPRAZOLE
     Indication: HIATUS HERNIA
     Route: 048
     Dates: start: 20050301

REACTIONS (1)
  - Gynaecomastia [Recovering/Resolving]

NARRATIVE: CASE EVENT DATE: 20160301
